FAERS Safety Report 4438654-6 (Version None)
Quarter: 2004Q3

REPORT INFORMATION
  Report Type: 
  Country: None (occurrence: None)
  Receive Date: 20040728
  Receipt Date: 20040227
  Transmission Date: 20050211
  Serious: No
  Sender: FDA-Public Use
  Company Number: USA040360440

PATIENT
  Age: 11 Year
  Sex: Female
  Weight: 27 kg

DRUGS (1)
  1. STRATTERA [Suspect]
     Indication: ATTENTION DEFICIT/HYPERACTIVITY DISORDER
     Dosage: 40 MG DAY
     Dates: start: 20030901

REACTIONS (5)
  - ANOREXIA [None]
  - DRUG EFFECT DECREASED [None]
  - INSOMNIA [None]
  - PRESCRIBED OVERDOSE [None]
  - WEIGHT DECREASED [None]
